FAERS Safety Report 21989390 (Version 2)
Quarter: 2023Q1

REPORT INFORMATION
  Report Type: Report from Study
  Country: CO (occurrence: CO)
  Receive Date: 20230214
  Receipt Date: 20230217
  Transmission Date: 20230418
  Serious: Yes (Other)
  Sender: FDA-Public Use
  Company Number: CO-AMGEN-COLSL2022065453

PATIENT
  Age: 50 Year
  Sex: Female

DRUGS (1)
  1. VECTIBIX [Suspect]
     Active Substance: PANITUMUMAB
     Indication: Colorectal cancer metastatic
     Dosage: 282 MILLIGRAM, Q2WK
     Route: 065
     Dates: start: 20210719

REACTIONS (6)
  - Rectal haemorrhage [Not Recovered/Not Resolved]
  - Endoscopy [Recovered/Resolved]
  - Positron emission tomogram [Recovered/Resolved]
  - Thrombosis [Not Recovered/Not Resolved]
  - Pain [Not Recovered/Not Resolved]
  - Illness [Not Recovered/Not Resolved]

NARRATIVE: CASE EVENT DATE: 20220301
